FAERS Safety Report 5494554-4 (Version None)
Quarter: 2007Q4

REPORT INFORMATION
  Report Type: 
  Country: None (occurrence: None)
  Receive Date: 20071022
  Receipt Date: 20071005
  Transmission Date: 20080405
  Serious: Yes (Hospitalization)
  Sender: FDA-Public Use
  Company Number: PHBS2007JP14837

PATIENT
  Age: 91 Year
  Sex: Female

DRUGS (1)
  1. VISUDYNE [Suspect]
     Indication: MACULAR DEGENERATION
     Dates: start: 20070905, end: 20070905

REACTIONS (2)
  - CEREBRAL INFARCTION [None]
  - DIZZINESS [None]
